FAERS Safety Report 11523664 (Version 1)
Quarter: 2015Q3

REPORT INFORMATION
  Report Type: Spontaneous
  Country: US (occurrence: US)
  Receive Date: 20150903
  Receipt Date: 20150903
  Transmission Date: 20151125
  Serious: No
  Sender: FDA-Public Use
  Company Number: US-ELI_LILLY_AND_COMPANY-US201303007682

PATIENT
  Sex: Female

DRUGS (1)
  1. CYMBALTA [Suspect]
     Active Substance: DULOXETINE HYDROCHLORIDE
     Indication: SUICIDAL IDEATION
     Dosage: 60 MG, TWICE A DAY
     Dates: end: 20130313

REACTIONS (4)
  - Intentional product misuse [Unknown]
  - Off label use [Unknown]
  - Withdrawal syndrome [Unknown]
  - Malaise [Unknown]
